FAERS Safety Report 18027748 (Version 1)
Quarter: 2020Q3

REPORT INFORMATION
  Report Type: Spontaneous
  Country: ES (occurrence: ES)
  Receive Date: 20200715
  Receipt Date: 20200715
  Transmission Date: 20201103
  Serious: Yes (Life-Threatening, Hospitalization)
  Sender: FDA-Public Use
  Company Number: ES-MYLANLABS-2020M1064415

PATIENT
  Age: 63 Year
  Sex: Female

DRUGS (13)
  1. CARBOPLATIN. [Suspect]
     Active Substance: CARBOPLATIN
     Dosage: AREA UNDER THE CURVE OF 2; WEEKLY CARBOPLATIN MONOTHERAPY
     Route: 065
     Dates: start: 201611, end: 201702
  2. OLAPARIB. [Suspect]
     Active Substance: OLAPARIB
     Indication: OVARIAN CANCER
     Dosage: 400 MILLIGRAM  12 H (HOURS)
     Route: 065
  3. PACLITAXEL. [Suspect]
     Active Substance: PACLITAXEL
     Indication: OVARIAN CANCER
     Dosage: 175 MILLIGRAM/SQ. METER SIX CYCLES
     Route: 065
     Dates: start: 201204, end: 201209
  4. GEMCITABINE. [Suspect]
     Active Substance: GEMCITABINE
     Dosage: 1000 MILLIGRAM/SQ. METER THREE CYCLES
     Route: 065
     Dates: start: 201406, end: 201409
  5. CAELYX [Suspect]
     Active Substance: DOXORUBICIN HYDROCHLORIDE
     Indication: OVARIAN CANCER
     Dosage: SIX CYCLES
     Route: 065
     Dates: start: 201507, end: 201512
  6. GEMCITABINE. [Suspect]
     Active Substance: GEMCITABINE
     Indication: OVARIAN CANCER RECURRENT
     Dosage: 1000 MILLIGRAM/SQ. METER THREE CYCLES
     Route: 065
  7. TRABECTEDIN [Suspect]
     Active Substance: TRABECTEDIN
     Indication: MALIGNANT NEOPLASM PROGRESSION
  8. CARBOPLATIN. [Suspect]
     Active Substance: CARBOPLATIN
     Indication: OVARIAN CANCER
     Dosage: SIX CYCLES; AREA UNDER THE CURVE OF 5
     Route: 065
     Dates: start: 201204, end: 201209
  9. CARBOPLATIN. [Suspect]
     Active Substance: CARBOPLATIN
     Indication: OVARIAN CANCER RECURRENT
     Dosage: AREA UNDER THE CURVE OF 5; THREE CYCLES
     Route: 065
  10. CAELYX [Suspect]
     Active Substance: DOXORUBICIN HYDROCHLORIDE
     Indication: MALIGNANT NEOPLASM PROGRESSION
  11. TRABECTEDIN [Suspect]
     Active Substance: TRABECTEDIN
     Indication: OVARIAN CANCER
     Dosage: SIX CYCLES
     Route: 065
     Dates: start: 201507, end: 201512
  12. OLAPARIB. [Suspect]
     Active Substance: OLAPARIB
     Indication: MALIGNANT NEOPLASM PROGRESSION
  13. CARBOPLATIN. [Suspect]
     Active Substance: CARBOPLATIN
     Indication: MALIGNANT NEOPLASM PROGRESSION
     Dosage: AREA UNDER THE CURVE OF 5; THREE CYCLES
     Route: 065
     Dates: start: 201406, end: 201409

REACTIONS (2)
  - Acute myeloid leukaemia [Unknown]
  - Gastrointestinal infection [Recovered/Resolved]
